FAERS Safety Report 10970082 (Version 1)
Quarter: 2015Q1

REPORT INFORMATION
  Report Type: Spontaneous
  Country: US (occurrence: None)
  Receive Date: 20150330
  Receipt Date: 20150330
  Transmission Date: 20150721
  Serious: Yes (Other)
  Sender: FDA-Public Use
  Company Number: None

PATIENT
  Age: 32 Year
  Sex: Female
  Weight: 88.6 kg

DRUGS (1)
  1. INFLIXIMAB [Suspect]
     Active Substance: INFLIXIMAB
     Indication: PAIN
     Route: 042
     Dates: start: 20130701, end: 20150202

REACTIONS (5)
  - Pustular psoriasis [None]
  - Dry skin [None]
  - Rash pruritic [None]
  - Rash [None]
  - Pain [None]

NARRATIVE: CASE EVENT DATE: 20150123
